FAERS Safety Report 21631487 (Version 1)
Quarter: 2022Q4

REPORT INFORMATION
  Report Type: Spontaneous
  Country: US (occurrence: US)
  Receive Date: 20221123
  Receipt Date: 20221123
  Transmission Date: 20230113
  Serious: Yes (Hospitalization, Other)
  Sender: FDA-Public Use
  Company Number: US-SPECGX-T202202202

PATIENT
  Age: 32 Year
  Sex: Female
  Weight: 98 kg

DRUGS (9)
  1. HYDROMORPHONE [Suspect]
     Active Substance: HYDROMORPHONE
     Indication: Central pain syndrome
     Dosage: 4 MILLIGRAM, PRN (ONE TABLET 3, 4 TO 6 HRS A DAY AS NEEDED)
     Route: 048
     Dates: start: 202010
  2. HYDROMORPHONE [Suspect]
     Active Substance: HYDROMORPHONE
     Indication: Hyperaesthesia
     Dosage: 4 MILLIGRAM, PRN, TAKING 3 TO FOUR EACH DAY
     Route: 048
     Dates: start: 202010
  3. HYDROMORPHONE [Suspect]
     Active Substance: HYDROMORPHONE
     Indication: Allodynia
     Dosage: 2 MILLIGRAM
     Route: 048
     Dates: start: 202206
  4. HYDROMORPHONE [Suspect]
     Active Substance: HYDROMORPHONE
     Indication: Complex regional pain syndrome
  5. METHADONE HYDROCHLORIDE [Suspect]
     Active Substance: METHADONE HYDROCHLORIDE
     Indication: Pain management
     Dosage: 12 MILLIGRAM IN 24 HRS (WAS TAKING 3 MG TO 5 MG; UPTO 15 MG IN 24 HRS)
     Route: 065
     Dates: start: 202006, end: 202009
  6. DILAUDID [Concomitant]
     Active Substance: HYDROMORPHONE HYDROCHLORIDE
     Indication: Pain management
     Dosage: 4 MILLIGRAM
     Route: 065
  7. HYDROXYZINE HYDROCHLORIDE [Concomitant]
     Active Substance: HYDROXYZINE HYDROCHLORIDE
     Indication: Sleep disorder
     Dosage: 25 MILLIGRAM
     Route: 065
  8. HYDROXYZINE HYDROCHLORIDE [Concomitant]
     Active Substance: HYDROXYZINE HYDROCHLORIDE
     Indication: Anxiety
  9. TEMAZEPAM [Concomitant]
     Active Substance: TEMAZEPAM
     Indication: Anxiety
     Dosage: 1 MILLIGRAM
     Route: 065

REACTIONS (8)
  - Chronic inflammatory demyelinating polyradiculoneuropathy [Unknown]
  - Blood glucose fluctuation [Not Recovered/Not Resolved]
  - Pain [Unknown]
  - Electrocardiogram QT prolonged [Unknown]
  - Anaemia [Unknown]
  - Adrenal insufficiency [Unknown]
  - Hypothalamic pituitary adrenal axis suppression [Unknown]
  - Drug ineffective [Unknown]

NARRATIVE: CASE EVENT DATE: 20201023
